FAERS Safety Report 6129928-1 (Version None)
Quarter: 2009Q1

REPORT INFORMATION
  Report Type: 
  Country: None (occurrence: None)
  Receive Date: 20090324
  Receipt Date: 20090312
  Transmission Date: 20090719
  Serious: Yes (Hospitalization, Other)
  Sender: FDA-Public Use
  Company Number: GB-PFIZER INC-2007022803

PATIENT

DRUGS (12)
  1. SOLU-CORTEF [Suspect]
     Dates: end: 20030917
  2. IMURAN [Suspect]
     Indication: CROHN'S DISEASE
     Route: 048
  3. INFLIXIMAB [Suspect]
     Indication: CROHN'S DISEASE
     Dosage: 160 MG, UNK
     Route: 042
     Dates: start: 20070308, end: 20070312
  4. OMEPRAZOLE [Concomitant]
     Route: 048
  5. HYDROCORTISONE [Concomitant]
  6. MEBEVERINE [Concomitant]
  7. GENTAMYCIN SULFATE [Concomitant]
  8. POTASSIUM CHLORIDE [Concomitant]
  9. PREDNISOLONE [Concomitant]
  10. PYRIDOXINE HYDROCHLORIDE [Concomitant]
  11. NICOTINAMIDE [Concomitant]
     Route: 042
  12. TYROSINE [Concomitant]
     Route: 042

REACTIONS (6)
  - BRAIN SCAN ABNORMAL [None]
  - CROHN'S DISEASE [None]
  - GRAND MAL CONVULSION [None]
  - NERVOUS SYSTEM DISORDER [None]
  - REVERSIBLE POSTERIOR LEUKOENCEPHALOPATHY SYNDROME [None]
  - VISUAL IMPAIRMENT [None]
